FAERS Safety Report 5059785-6 (Version None)
Quarter: 2006Q3

REPORT INFORMATION
  Report Type: 
  Country: None (occurrence: None)
  Receive Date: 20060724
  Receipt Date: 20060720
  Transmission Date: 20061208
  Serious: Yes (Other)
  Sender: FDA-Public Use
  Company Number: US-GLAXOSMITHKLINE-A0612993A

PATIENT
  Sex: Female

DRUGS (1)
  1. VALTREX [Suspect]
     Route: 048
     Dates: start: 20060501

REACTIONS (2)
  - FACIAL PALSY [None]
  - THERAPEUTIC RESPONSE UNEXPECTED [None]
